FAERS Safety Report 25052774 (Version 1)
Quarter: 2025Q1

REPORT INFORMATION
  Report Type: Spontaneous
  Country: US (occurrence: US)
  Receive Date: 20250307
  Receipt Date: 20250307
  Transmission Date: 20250409
  Serious: No
  Sender: AMGEN
  Company Number: US-AMGEN-USASP2025042838

PATIENT
  Sex: Female

DRUGS (3)
  1. REPATHA [Suspect]
     Active Substance: EVOLOCUMAB
     Indication: Blood cholesterol abnormal
     Dosage: 140 MILLIGRAM, Q2WK
     Route: 065
     Dates: start: 20250225
  2. ALBUTEROL [Concomitant]
     Active Substance: ALBUTEROL
     Indication: Food allergy
  3. ALBUTEROL [Concomitant]
     Active Substance: ALBUTEROL
     Indication: Multiple allergies

REACTIONS (2)
  - Dyspnoea [Unknown]
  - Lacrimation increased [Unknown]

NARRATIVE: CASE EVENT DATE: 20250201
